FAERS Safety Report 14358803 (Version 2)
Quarter: 2020Q3

REPORT INFORMATION
  Report Type: Report from Study
  Country: US (occurrence: US)
  Receive Date: 20180105
  Receipt Date: 20200706
  Transmission Date: 20201102
  Serious: No
  Sender: FDA-Public Use
  Company Number: US-SA-2017SA260498

PATIENT
  Age: 57 Year
  Sex: Female

DRUGS (2)
  1. DUPILUMAB [Suspect]
     Active Substance: DUPILUMAB
     Dosage: 300 MG, QW
     Route: 058
     Dates: start: 201712
  2. DUPILUMAB [Suspect]
     Active Substance: DUPILUMAB
     Indication: DERMATITIS ATOPIC
     Dosage: 600 MG, 1X
     Route: 058
     Dates: start: 20171127, end: 20171127

REACTIONS (5)
  - Headache [Recovering/Resolving]
  - Peripheral swelling [Unknown]
  - Eczema [Unknown]
  - Blepharospasm [Unknown]
  - Pruritus [Unknown]

NARRATIVE: CASE EVENT DATE: 20171128
